FAERS Safety Report 21740799 (Version 1)
Quarter: 2022Q4

REPORT INFORMATION
  Report Type: Spontaneous
  Country: US (occurrence: US)
  Receive Date: 20221216
  Receipt Date: 20221216
  Transmission Date: 20230113
  Serious: No
  Sender: FDA-Public Use
  Company Number: US-REGENERON PHARMACEUTICALS, INC.-2022-137348

PATIENT
  Age: 79 Year
  Sex: Female

DRUGS (1)
  1. EYLEA [Suspect]
     Active Substance: AFLIBERCEPT
     Indication: Diabetic retinal oedema
     Dosage: 2 MG, Q4W IN RIGHT EYE
     Dates: start: 20211201

REACTIONS (3)
  - Headache [Recovering/Resolving]
  - Eye pain [Recovering/Resolving]
  - Vision blurred [Not Recovered/Not Resolved]

NARRATIVE: CASE EVENT DATE: 20221001
